FAERS Safety Report 7728555-X (Version None)
Quarter: 2011Q3

REPORT INFORMATION
  Report Type: 
  Country: None (occurrence: None)
  Receive Date: 20110906
  Receipt Date: 20110825
  Transmission Date: 20111222
  Serious: No
  Sender: FDA-Public Use
  Company Number: US-BIOGENIDEC-2011BI028956

PATIENT
  Age: 43 Year
  Sex: Female

DRUGS (2)
  1. TYSABRI [Suspect]
     Indication: MULTIPLE SCLEROSIS
     Route: 042
     Dates: start: 20090522, end: 20091016
  2. TYSABRI [Suspect]
     Route: 042
     Dates: start: 20110729

REACTIONS (13)
  - FALL [None]
  - NAUSEA [None]
  - FATIGUE [None]
  - MULTIPLE SCLEROSIS RELAPSE [None]
  - VERTIGO [None]
  - ARTHRALGIA [None]
  - GAIT DISTURBANCE [None]
  - HYPOAESTHESIA [None]
  - DYSPNOEA [None]
  - HEADACHE [None]
  - PAIN IN EXTREMITY [None]
  - MUSCLE SPASMS [None]
  - ASTHENIA [None]
